FAERS Safety Report 7451157-X (Version None)
Quarter: 2011Q2

REPORT INFORMATION
  Report Type: 
  Country: None (occurrence: None)
  Receive Date: 20110502
  Receipt Date: 20110419
  Transmission Date: 20111010
  Serious: Yes (Other)
  Sender: FDA-Public Use
  Company Number: PHHY2011JP16413

PATIENT
  Sex: Female

DRUGS (5)
  1. ASPIRIN [Suspect]
     Indication: CEREBRAL ISCHAEMIA
     Dosage: 100 MG DAILY
     Route: 048
     Dates: start: 20050821, end: 20110215
  2. LUVOX [Suspect]
     Indication: DEPRESSION
     Dosage: 10 DF, DAILY
     Dates: start: 20050821, end: 20110215
  3. DIOVAN [Suspect]
     Dosage: 80 MG DAILY
     Route: 048
     Dates: start: 20060416, end: 20110215
  4. DIOVAN [Suspect]
     Indication: HYPERTENSION
     Dosage: 40 MG DAILY
     Route: 048
  5. NEUQUINON [Suspect]
     Dosage: 30 MG DAILY
     Route: 048
     Dates: start: 20050821, end: 20110215

REACTIONS (2)
  - NEUTROPHIL COUNT DECREASED [None]
  - WHITE BLOOD CELL COUNT DECREASED [None]
